FAERS Safety Report 17648031 (Version 2)
Quarter: 2020Q2

REPORT INFORMATION
  Report Type: Spontaneous
  Country: AU (occurrence: AU)
  Receive Date: 20200408
  Receipt Date: 20200415
  Transmission Date: 20200713
  Serious: Yes (Other)
  Sender: FDA-Public Use
  Company Number: AU-JNJFOC-20200402965

PATIENT

DRUGS (8)
  1. GASTROSTOP [Concomitant]
  2. SIMPONI [Suspect]
     Active Substance: GOLIMUMAB
     Indication: COLITIS ULCERATIVE
     Route: 058
  3. IMURAN [Concomitant]
     Active Substance: AZATHIOPRINE
  4. MEZAVANT [Concomitant]
     Active Substance: MESALAMINE
  5. BUDENOFALK [Concomitant]
     Active Substance: BUDESONIDE
  6. GLUCOSAMIN SULPHATE [Concomitant]
  7. IRON [Concomitant]
     Active Substance: IRON
  8. MULTIVITAMIN                       /02160401/ [Concomitant]
     Active Substance: VITAMINS

REACTIONS (3)
  - Colon dysplasia [Unknown]
  - Drug ineffective [Unknown]
  - Rectal dysplasia [Unknown]
